FAERS Safety Report 7269915-3 (Version None)
Quarter: 2011Q1

REPORT INFORMATION
  Report Type: 
  Country: None (occurrence: None)
  Receive Date: 20110202
  Receipt Date: 20110119
  Transmission Date: 20110831
  Serious: Yes (Life-Threatening, Hospitalization, Other)
  Sender: FDA-Public Use
  Company Number: DE-ROCHE-680084

PATIENT
  Sex: Female
  Weight: 57 kg

DRUGS (5)
  1. PREDNISONE [Concomitant]
     Indication: PREMEDICATION
     Dates: start: 20090916, end: 20090916
  2. ROACTEMRA [Suspect]
     Indication: POLYARTHRITIS
     Dosage: GIVEN ON 16-SEP-2009 AND ON 12-OCT-2009
     Route: 042
     Dates: start: 20090916, end: 20091012
  3. ARCOXIA [Concomitant]
  4. DECORTIN [Concomitant]
     Route: 048
  5. H1 BLOCKER [Concomitant]
     Indication: PREMEDICATION
     Dates: start: 20090916, end: 20090916

REACTIONS (27)
  - APHASIA [None]
  - ANAPHYLACTIC SHOCK [None]
  - DYSGEUSIA [None]
  - HYPERHIDROSIS [None]
  - DIARRHOEA [None]
  - MIGRAINE [None]
  - VISUAL IMPAIRMENT [None]
  - VIRAL INFECTION [None]
  - VOMITING [None]
  - WHEEZING [None]
  - NEPHROTIC SYNDROME [None]
  - HYPERTENSION [None]
  - PANCYTOPENIA [None]
  - BONE MARROW DISORDER [None]
  - BACTERIAL INFECTION [None]
  - DECREASED APPETITE [None]
  - FACIAL PARESIS [None]
  - DEPRESSION [None]
  - URTICARIA [None]
  - PAROSMIA [None]
  - PROTEINURIA [None]
  - DIZZINESS [None]
  - INSOMNIA [None]
  - HYPOALBUMINAEMIA [None]
  - ALOPECIA TOTALIS [None]
  - STOMATITIS [None]
  - NAUSEA [None]
